FAERS Safety Report 7713774-9 (Version None)
Quarter: 2011Q3

REPORT INFORMATION
  Report Type: 
  Country: None (occurrence: None)
  Receive Date: 20110826
  Receipt Date: 20110819
  Transmission Date: 20111222
  Serious: Yes (Other)
  Sender: FDA-Public Use
  Company Number: US-PFIZER INC-2011192583

PATIENT
  Sex: Male
  Weight: 131.51 kg

DRUGS (8)
  1. PLAVIX [Concomitant]
     Indication: ANTICOAGULANT THERAPY
     Dosage: UNK
  2. LYRICA [Concomitant]
     Indication: NEUROPATHY PERIPHERAL
     Dosage: UNK
  3. COREG [Concomitant]
     Indication: HYPERTENSION
  4. METFORMIN HYDROCHLORIDE/SITAGLIPTIN [Concomitant]
     Indication: DIABETES MELLITUS
     Dosage: UNK
  5. ACETYLSALICYLIC ACID [Concomitant]
     Indication: ANTICOAGULANT THERAPY
     Dosage: UNK
  6. VIAGRA [Suspect]
     Indication: ERECTILE DYSFUNCTION
     Dosage: 20 MG, UNK
     Route: 048
     Dates: start: 20090101
  7. DIAZEPAM [Concomitant]
     Indication: BLOOD TRIGLYCERIDES INCREASED
     Dosage: UNK
  8. VYTORIN [Concomitant]
     Indication: BLOOD CHOLESTEROL INCREASED

REACTIONS (2)
  - HYPOTENSION [None]
  - DRUG INEFFECTIVE [None]
